FAERS Safety Report 7738866-X (Version None)
Quarter: 2011Q3

REPORT INFORMATION
  Report Type: 
  Country: None (occurrence: None)
  Receive Date: 20110909
  Receipt Date: 20110831
  Transmission Date: 20111222
  Serious: Yes (Hospitalization)
  Sender: FDA-Public Use
  Company Number: US-BIOGENIDEC-2011BI033866

PATIENT
  Age: 35 Year
  Sex: Female

DRUGS (1)
  1. TYSABRI [Suspect]
     Indication: MULTIPLE SCLEROSIS
     Route: 042
     Dates: start: 20070914

REACTIONS (5)
  - POLYCYSTIC OVARIES [None]
  - SEPSIS [None]
  - URINARY TRACT INFECTION [None]
  - PAIN [None]
  - SLEEP APNOEA SYNDROME [None]
